FAERS Safety Report 7762339-1 (Version None)
Quarter: 2011Q3

REPORT INFORMATION
  Report Type: 
  Country: None (occurrence: None)
  Receive Date: 20110920
  Receipt Date: 20110912
  Transmission Date: 20111222
  Serious: Yes (Hospitalization)
  Sender: FDA-Public Use
  Company Number: CA-ROCHE-799773

PATIENT
  Sex: Male
  Weight: 108.9 kg

DRUGS (5)
  1. OXAZEPAM [Concomitant]
  2. PREDNISONE [Concomitant]
  3. TOCILIZUMAB [Suspect]
     Indication: RHEUMATOID ARTHRITIS
     Route: 042
     Dates: start: 20101012, end: 20110822
  4. MULTI-VITAMIN [Concomitant]
  5. FOLIC ACID [Concomitant]

REACTIONS (1)
  - MYOCARDIAL INFARCTION [None]
